FAERS Safety Report 10560878 (Version 5)
Quarter: 2015Q3

REPORT INFORMATION
  Report Type: Report from Study
  Country: DE (occurrence: DE)
  Receive Date: 20141103
  Receipt Date: 20150826
  Transmission Date: 20151125
  Serious: Yes (Hospitalization)
  Sender: FDA-Public Use
  Company Number: PHHO2014DE014446

PATIENT
  Age: 16 Year
  Sex: Female
  Weight: 59.4 kg

DRUGS (11)
  1. RAMIPRIL. [Concomitant]
     Active Substance: RAMIPRIL
     Indication: HYPERTENSION
     Dosage: UNK
     Route: 065
  2. EVEROLIMUS [Suspect]
     Active Substance: EVEROLIMUS
     Indication: RENAL TRANSPLANT
     Dosage: 1.2 MG, BID
     Route: 048
     Dates: start: 20141013
  3. EVEROLIMUS [Suspect]
     Active Substance: EVEROLIMUS
     Dosage: 0.75 MG, BID
     Route: 048
     Dates: start: 20150805
  4. EVEROLIMUS [Suspect]
     Active Substance: EVEROLIMUS
     Dosage: 1 MG, BID
     Route: 048
     Dates: start: 20150807
  5. RAMIPRIL. [Concomitant]
     Active Substance: RAMIPRIL
     Dosage: UNK
     Route: 065
     Dates: start: 20150807
  6. AMLODIPIN [Concomitant]
     Active Substance: AMLODIPINE BESYLATE
     Dosage: UNK
     Route: 065
     Dates: start: 20150807
  7. PREDNISOLONE. [Suspect]
     Active Substance: PREDNISOLONE
     Indication: RENAL TRANSPLANT
     Dosage: 5 MG, QD
     Route: 048
     Dates: start: 20140913
  8. AMLODIPIN [Concomitant]
     Active Substance: AMLODIPINE BESYLATE
     Indication: HYPERTENSION
     Route: 065
  9. NEORAL [Suspect]
     Active Substance: CYCLOSPORINE
     Indication: RENAL TRANSPLANT
     Dosage: 75 MG, BID
     Route: 048
     Dates: start: 20140913
  10. EVEROLIMUS [Suspect]
     Active Substance: EVEROLIMUS
     Dosage: 0.6 MG, BID
     Route: 048
  11. NEORAL [Suspect]
     Active Substance: CYCLOSPORINE
     Dosage: 60 MG, BID
     Route: 048

REACTIONS (3)
  - Urosepsis [Recovered/Resolved with Sequelae]
  - Kidney transplant rejection [Recovered/Resolved with Sequelae]
  - Renal abscess [Recovering/Resolving]

NARRATIVE: CASE EVENT DATE: 20141025
